FAERS Safety Report 10052455 (Version 1)
Quarter: 2014Q2

REPORT INFORMATION
  Report Type: Spontaneous
  Country: NL (occurrence: NL)
  Receive Date: 20140402
  Receipt Date: 20140402
  Transmission Date: 20141212
  Serious: Yes (Hospitalization)
  Sender: FDA-Public Use
  Company Number: NL-009507513-1404NLD000237

PATIENT
  Age: 35 Year
  Sex: Female
  Weight: 85 kg

DRUGS (2)
  1. SINGULAIR [Suspect]
     Indication: ASTHMA
     Dosage: 1* DAAGS 1 DOSIS
     Route: 048
     Dates: start: 20121010, end: 20131220
  2. QVAR [Concomitant]
     Indication: ASTHMA
     Dosage: 2 DAAGS
     Route: 055
     Dates: start: 20140206

REACTIONS (4)
  - General physical health deterioration [Recovered/Resolved]
  - Heart rate increased [Recovered/Resolved]
  - Abdominal discomfort [Recovered/Resolved]
  - Fatigue [Recovered/Resolved]
